FAERS Safety Report 12492366 (Version 1)
Quarter: 2016Q2

REPORT INFORMATION
  Report Type: Spontaneous
  Country: US (occurrence: None)
  Receive Date: 20160622
  Receipt Date: 20160622
  Transmission Date: 20160815
  Serious: Yes (Hospitalization)
  Sender: FDA-Public Use
  Company Number: None

PATIENT
  Age: 24 Year
  Sex: Male
  Weight: 75.6 kg

DRUGS (6)
  1. RITUXIMAB (MOAB C2B8 ANTI CD20, CHIMERIC) [Suspect]
     Active Substance: RITUXIMAB
     Dates: end: 20150803
  2. CYCLOPHOSPHAMIDE. [Suspect]
     Active Substance: CYCLOPHOSPHAMIDE
     Dates: end: 20150808
  3. VINCRISTINE SULFATE. [Suspect]
     Active Substance: VINCRISTINE SULFATE
     Dates: end: 20150806
  4. DOXORUBICIN HYDROCHLORIDE. [Suspect]
     Active Substance: DOXORUBICIN HYDROCHLORIDE
     Dates: end: 20150806
  5. ETOPOSIDE (VP-16) [Suspect]
     Active Substance: ETOPOSIDE
     Dates: end: 20150806
  6. PREDNISONE. [Suspect]
     Active Substance: PREDNISONE
     Dates: end: 20150807

REACTIONS (13)
  - Device breakage [None]
  - Foreign body [None]
  - Flank pain [None]
  - Urine output decreased [None]
  - Urinary tract infection [None]
  - Anaemia [None]
  - Computerised tomogram abnormal [None]
  - Calculus urinary [None]
  - Medical device site reaction [None]
  - Hydronephrosis [None]
  - Penile pain [None]
  - Ureteric stenosis [None]
  - Complication of device removal [None]

NARRATIVE: CASE EVENT DATE: 20150808
